FAERS Safety Report 22759628 (Version 2)
Quarter: 2023Q4

REPORT INFORMATION
  Report Type: Report from Study
  Country: DE (occurrence: DE)
  Receive Date: 20230728
  Receipt Date: 20231027
  Transmission Date: 20240110
  Serious: Yes (Hospitalization, Other)
  Sender: FDA-Public Use
  Company Number: DE-TAKEDA-2023TUS073805

PATIENT
  Age: 6 Year
  Sex: Female

DRUGS (8)
  1. TEDUGLUTIDE [Suspect]
     Active Substance: TEDUGLUTIDE
     Indication: Short-bowel syndrome
     Dosage: 0.75 MILLIGRAM, QD
     Route: 042
     Dates: start: 20220907
  2. TEDUGLUTIDE [Suspect]
     Active Substance: TEDUGLUTIDE
     Indication: Short-bowel syndrome
     Dosage: 0.75 MILLIGRAM, QD
     Route: 042
     Dates: start: 20220907
  3. TEDUGLUTIDE [Suspect]
     Active Substance: TEDUGLUTIDE
     Indication: Short-bowel syndrome
     Dosage: 0.75 MILLIGRAM, QD
     Route: 042
     Dates: start: 20220907
  4. TEDUGLUTIDE [Suspect]
     Active Substance: TEDUGLUTIDE
     Indication: Short-bowel syndrome
     Dosage: 0.75 MILLIGRAM, QD
     Route: 042
     Dates: start: 20220907
  5. TAZOBACTAM [Concomitant]
     Active Substance: TAZOBACTAM
     Indication: Gastroenteritis
     Dosage: UNK
     Route: 042
     Dates: start: 20230123, end: 20230127
  6. PIPERACILLIN [Concomitant]
     Active Substance: PIPERACILLIN
     Indication: Gastroenteritis
     Dosage: UNK
     Route: 042
     Dates: start: 20230123, end: 20230127
  7. ESOMEPRAZOLE [Concomitant]
     Active Substance: ESOMEPRAZOLE
     Indication: Gastrointestinal inflammation
     Dosage: 10 MILLIGRAM, BID
     Route: 048
     Dates: start: 20230224
  8. OMEPRAZOLE [Concomitant]
     Active Substance: OMEPRAZOLE
     Indication: Gastrointestinal inflammation
     Dosage: 10 MILLIGRAM, QD
     Route: 048
     Dates: start: 20230215, end: 20230224

REACTIONS (3)
  - Vascular device infection [Recovered/Resolved]
  - Crohn^s disease [Recovered/Resolved]
  - Norovirus infection [Recovered/Resolved]

NARRATIVE: CASE EVENT DATE: 20230607
